FAERS Safety Report 10005765 (Version 1)
Quarter: 2014Q1

REPORT INFORMATION
  Report Type: Spontaneous
  Country: US (occurrence: US)
  Receive Date: 20140313
  Receipt Date: 20140313
  Transmission Date: 20141002
  Serious: No
  Sender: FDA-Public Use
  Company Number: US-BIOGENIDEC-2014BI021421

PATIENT
  Sex: Female

DRUGS (6)
  1. TECFIDERA [Suspect]
     Indication: MULTIPLE SCLEROSIS
     Route: 048
     Dates: start: 201312
  2. CYMBALTA [Concomitant]
  3. DETROL [Concomitant]
  4. BACLOFEN [Concomitant]
  5. CIPROFLOXACIN ER [Concomitant]
  6. AMPRYA [Concomitant]

REACTIONS (1)
  - Depression [Unknown]
